FAERS Safety Report 11262057 (Version 2)
Quarter: 2015Q3

REPORT INFORMATION
  Report Type: Spontaneous
  Country: BR (occurrence: BR)
  Receive Date: 20150710
  Receipt Date: 20150727
  Transmission Date: 20151125
  Serious: Yes (Other)
  Sender: FDA-Public Use
  Company Number: BR-SA-2015SA097778

PATIENT
  Age: 25 Year
  Sex: Female
  Weight: 65 kg

DRUGS (6)
  1. RASILEZ [Concomitant]
     Active Substance: ALISKIREN
     Indication: RENAL DISORDER
     Route: 048
     Dates: start: 2013
  2. AUTOPEN 24 [Concomitant]
     Active Substance: DEVICE
     Indication: DEVICE THERAPY
     Dates: start: 2005
  3. APIDRA [Suspect]
     Active Substance: INSULIN GLULISINE
     Indication: TYPE 1 DIABETES MELLITUS
     Route: 058
  4. GABAPENTIN. [Concomitant]
     Active Substance: GABAPENTIN
     Indication: NEUROPATHY PERIPHERAL
     Route: 048
     Dates: start: 2013
  5. LANTUS [Suspect]
     Active Substance: INSULIN GLARGINE
     Indication: TYPE 1 DIABETES MELLITUS
     Dosage: APPROXIMATELY 10YEARS AGO
     Route: 058
     Dates: start: 2005
  6. CLIKSTAR [Concomitant]
     Active Substance: CLIKSTAR
     Indication: DEVICE THERAPY

REACTIONS (8)
  - Blood glucose increased [Recovered/Resolved]
  - Renal disorder [Recovering/Resolving]
  - Hypertensive crisis [Recovered/Resolved]
  - Crying [Recovered/Resolved]
  - Anaemia [Unknown]
  - Injection site pain [Recovered/Resolved]
  - Nervousness [Recovered/Resolved]
  - Nausea [Recovered/Resolved]

NARRATIVE: CASE EVENT DATE: 2013
